FAERS Safety Report 17606901 (Version 3)
Quarter: 2020Q2

REPORT INFORMATION
  Report Type: Report from Study
  Country: CA (occurrence: CA)
  Receive Date: 20200331
  Receipt Date: 20200416
  Transmission Date: 20200713
  Serious: Yes (Other)
  Sender: FDA-Public Use
  Company Number: CA-JNJFOC-20200316152

PATIENT
  Age: 48 Year
  Sex: Male

DRUGS (1)
  1. STELARA [Suspect]
     Active Substance: USTEKINUMAB
     Indication: CROHN^S DISEASE
     Route: 058
     Dates: start: 20160901

REACTIONS (7)
  - Gastrointestinal inflammation [Unknown]
  - Headache [Unknown]
  - Paranasal sinus discomfort [Unknown]
  - Crohn^s disease [Not Recovered/Not Resolved]
  - Tooth abscess [Recovered/Resolved]
  - Drug ineffective [Unknown]
  - Dental care [Unknown]

NARRATIVE: CASE EVENT DATE: 201911
